FAERS Safety Report 8348827-8 (Version None)
Quarter: 2012Q2

REPORT INFORMATION
  Report Type: 
  Country: None (occurrence: None)
  Receive Date: 20120508
  Receipt Date: 20120425
  Transmission Date: 20120825
  Serious: Yes (Hospitalization, Other)
  Sender: FDA-Public Use
  Company Number: CIP11002917

PATIENT
  Age: 75 Year
  Sex: Female

DRUGS (31)
  1. ECONAZOLE (ECONAZOLE) [Concomitant]
  2. PREDNISONE TAB [Concomitant]
  3. FOSAMAX [Suspect]
     Indication: PROPHYLAXIS
     Dosage: 10 MG DAILY, ORAL 70 MG, ORAL
     Route: 048
     Dates: start: 20010401, end: 20030101
  4. FOSAMAX [Suspect]
     Indication: OSTEOPOROSIS
     Dosage: 10 MG DAILY, ORAL 70 MG, ORAL
     Route: 048
     Dates: start: 20010401, end: 20030101
  5. FOSAMAX [Suspect]
     Indication: PROPHYLAXIS
     Dosage: 10 MG DAILY, ORAL 70 MG, ORAL
     Route: 048
     Dates: start: 19990901, end: 20010301
  6. FOSAMAX [Suspect]
     Indication: OSTEOPOROSIS
     Dosage: 10 MG DAILY, ORAL 70 MG, ORAL
     Route: 048
     Dates: start: 19990901, end: 20010301
  7. CALCIUM CARBONATE [Concomitant]
  8. SYNTHROID [Concomitant]
  9. AMOXICILLIN [Concomitant]
  10. ACTONEL [Suspect]
     Dosage: 150 MG ONCE MONTHLY, ORAL 35 MG ONCE WEEKLY, ORAL
     Route: 048
     Dates: start: 20081201
  11. ACTONEL [Suspect]
     Dosage: 150 MG ONCE MONTHLY, ORAL 35 MG ONCE WEEKLY, ORAL
     Route: 048
     Dates: start: 20100401
  12. MIACALCIN [Concomitant]
  13. ZETIA [Concomitant]
  14. VALTREX [Concomitant]
  15. HYDROCHLORTHIAZIDE (HYDROCHLORTHIAZIDE) [Concomitant]
  16. PROMETHAZINE W/ CODEINE [Concomitant]
  17. CRESTOR [Concomitant]
  18. DIFLORASONE (DIFLORASONE) [Concomitant]
  19. CLOTRIMAZOLE W/BETAMETHASONE DIPROPIONAT (BETAMETHASONE DIPROPIONATE, [Concomitant]
  20. ACTONEL [Suspect]
     Dosage: 35 MG ONCE WEEKLY, ORAL
     Route: 048
     Dates: start: 20030101, end: 20080101
  21. VITAMIN D (COLECALCIFEROL) [Concomitant]
  22. AVELOX [Concomitant]
  23. NIASPAN [Concomitant]
  24. COENZYME Q10 [Concomitant]
  25. LOVAZA [Concomitant]
  26. CEPHALEXIN [Concomitant]
  27. PRAVACHOL [Concomitant]
  28. OMACOR (DOCOSAHEXAENOIC ACID, EICOSAPENTAENOIC ACID) [Concomitant]
  29. BETAMETHASONE [Concomitant]
  30. SULFAMETHOXAZOLE W/TRIMETHOPRIL (SULFAMETHOXAZOLE, TRIMETHOPRIM) [Concomitant]
  31. MULTIVITAMIN (ASCORBIC ACID, CALCIUM PANTOTHENATE, ERGOCALCIFEROL, NIC [Concomitant]

REACTIONS (12)
  - FALL [None]
  - PAIN IN EXTREMITY [None]
  - FEMUR FRACTURE [None]
  - FRACTURE DISPLACEMENT [None]
  - LOW TURNOVER OSTEOPATHY [None]
  - BONE MARROW OEDEMA [None]
  - OEDEMA PERIPHERAL [None]
  - STRESS FRACTURE [None]
  - FEMORAL NECK FRACTURE [None]
  - ARTHRALGIA [None]
  - OSTEOGENESIS IMPERFECTA [None]
  - BURSITIS [None]
